FAERS Safety Report 8020499-1 (Version None)
Quarter: 2012Q1

REPORT INFORMATION
  Report Type: 
  Country: None (occurrence: None)
  Receive Date: 20120103
  Receipt Date: 20111227
  Transmission Date: 20120608
  Serious: Yes (Other)
  Sender: FDA-Public Use
  Company Number: US-RB-032499-11

PATIENT
  Age: 58 Year
  Sex: Male

DRUGS (7)
  1. SUBOXONE [Suspect]
     Indication: DRUG DEPENDENCE
     Route: 060
     Dates: start: 20100101, end: 20101001
  2. CELEXA [Concomitant]
     Indication: DEPRESSION
     Dosage: UNKNOWN
     Route: 065
  3. TRAZODONE HCL [Concomitant]
     Indication: SLEEP DISORDER
  4. ADDERALL 5 [Concomitant]
  5. SUBOXONE [Suspect]
     Indication: PRODUCT USED FOR UNKNOWN INDICATION
     Dosage: UNKNOWN DOSE
     Route: 065
     Dates: start: 20110901
  6. NEURONTON [Concomitant]
     Indication: PAIN
     Dosage: UNKNOWN DOSE
     Route: 065
  7. SUBOXONE [Suspect]
     Indication: DRUG DEPENDENCE
     Route: 060
     Dates: start: 20101001, end: 20110801

REACTIONS (7)
  - WRONG TECHNIQUE IN DRUG USAGE PROCESS [None]
  - EUPHORIC MOOD [None]
  - DYSPNOEA [None]
  - DRUG WITHDRAWAL SYNDROME [None]
  - OEDEMA PERIPHERAL [None]
  - THERAPEUTIC RESPONSE UNEXPECTED [None]
  - CARDIAC FAILURE CONGESTIVE [None]
